FAERS Safety Report 11713578 (Version 1)
Quarter: 2015Q4

REPORT INFORMATION
  Report Type: Spontaneous
  Country: US (occurrence: None)
  Receive Date: 20151106
  Receipt Date: 20151106
  Transmission Date: 20160304
  Serious: Yes (Other)
  Sender: FDA-Public Use
  Company Number: None

PATIENT
  Age: 40 Year
  Sex: Female
  Weight: 90.72 kg

DRUGS (4)
  1. DEXTROAMPHETAMINE 5 MG WILSHIRE [Suspect]
     Active Substance: DEXTROAMPHETAMINE
     Indication: NARCOLEPSY
     Route: 048
     Dates: start: 20151001, end: 20151104
  2. PROVIGIL [Concomitant]
     Active Substance: MODAFINIL
  3. DEXEDRINE [Concomitant]
     Active Substance: DEXTROAMPHETAMINE SULFATE
  4. DESIPRAMINE [Concomitant]
     Active Substance: DESIPRAMINE

REACTIONS (5)
  - Somnolence [None]
  - Drug effect variable [None]
  - Drug ineffective [None]
  - Alopecia [None]
  - Product substitution issue [None]

NARRATIVE: CASE EVENT DATE: 20151001
